FAERS Safety Report 4793714-5 (Version None)
Quarter: 2005Q4

REPORT INFORMATION
  Report Type: 
  Country: None (occurrence: None)
  Receive Date: 20051006
  Receipt Date: 20050921
  Transmission Date: 20060501
  Serious: Yes (Other)
  Sender: FDA-Public Use
  Company Number: 005693

PATIENT
  Age: 30 Year
  Sex: Female

DRUGS (3)
  1. SEASONALE [Suspect]
     Indication: ORAL CONTRACEPTION
     Dosage: 1 TABLET, QD, ORAL
     Route: 048
     Dates: start: 20040901, end: 20050601
  2. CELEXA [Concomitant]
  3. SINGULAIR ^MERCK^ (MONTELUKAST SODIUM) [Concomitant]

REACTIONS (6)
  - ABORTION SPONTANEOUS [None]
  - CERVIX DISORDER [None]
  - DRUG EXPOSURE DURING PREGNANCY [None]
  - PREGNANCY [None]
  - UTERINE LEIOMYOMA [None]
  - VAGINAL HAEMORRHAGE [None]
